FAERS Safety Report 11422284 (Version 1)
Quarter: 2015Q3

REPORT INFORMATION
  Report Type: Spontaneous
  Country: AU (occurrence: None)
  Receive Date: 20150825
  Receipt Date: 20150825
  Transmission Date: 20151125
  Serious: Yes (Other)
  Sender: FDA-Public Use
  Company Number: AU-2015INT000519

PATIENT
  Age: 77 Year
  Sex: Male

DRUGS (3)
  1. RADIOTHERAPY (RADIOTHERAPY) [Suspect]
     Active Substance: RADIATION THERAPY
     Indication: SQUAMOUS CELL CARCINOMA
     Dosage: 60 GY IN 30 FRACTIONS
  2. CISPLATIN (CISPLATIN) UNKNOWN [Suspect]
     Active Substance: CISPLATIN
     Indication: SQUAMOUS CELL CARCINOMA
     Dosage: 50 MG/M2, DAY 1, 8, 29, 36, INTRAVENOUS
     Route: 042
  3. ETOPOSIDE (ETOPOSIDE) [Suspect]
     Active Substance: ETOPOSIDE
     Indication: SQUAMOUS CELL CARCINOMA
     Dosage: 50 MG/M2, DAY 1-5, 29-33, INTRAVENOUS
     Route: 042

REACTIONS (1)
  - Pleural effusion [None]
